FAERS Safety Report 19131584 (Version 1)
Quarter: 2021Q2

REPORT INFORMATION
  Report Type: Spontaneous
  Country: FR (occurrence: FR)
  Receive Date: 20210414
  Receipt Date: 20210414
  Transmission Date: 20210717
  Serious: Yes (Hospitalization, Other)
  Sender: FDA-Public Use
  Company Number: FR-AUROBINDO-AUR-APL-2021-015155

PATIENT
  Age: 90 Year
  Sex: Female
  Weight: 74 kg

DRUGS (2)
  1. CEFTRIAXONE. [Suspect]
     Active Substance: CEFTRIAXONE
     Indication: ENTEROCOCCAL INFECTION
     Dosage: 4 GRAM, ONCE A DAY
     Route: 042
     Dates: start: 20210106
  2. AMOXICILLIN. [Suspect]
     Active Substance: AMOXICILLIN
     Indication: ENTEROCOCCAL INFECTION
     Dosage: 12 GRAM
     Route: 042
     Dates: start: 20210106

REACTIONS (3)
  - Acute kidney injury [Recovering/Resolving]
  - Nephritis [Recovering/Resolving]
  - Crystalluria [Recovering/Resolving]

NARRATIVE: CASE EVENT DATE: 20210120
